FAERS Safety Report 15407665 (Version 1)
Quarter: 2018Q3

REPORT INFORMATION
  Report Type: Spontaneous
  Country: US (occurrence: US)
  Receive Date: 20180920
  Receipt Date: 20180920
  Transmission Date: 20181010
  Serious: Yes (Other)
  Sender: FDA-Public Use
  Company Number: US-JNJFOC-20180919284

PATIENT
  Age: 72 Year
  Sex: Male
  Weight: 98.43 kg

DRUGS (1)
  1. INVOKANA [Suspect]
     Active Substance: CANAGLIFLOZIN
     Indication: TYPE 2 DIABETES MELLITUS
     Route: 048

REACTIONS (6)
  - Toe amputation [Unknown]
  - Ulcer [Unknown]
  - Cellulitis [Unknown]
  - Amputation [Unknown]
  - Osteomyelitis [Unknown]
  - Foot deformity [Unknown]

NARRATIVE: CASE EVENT DATE: 201407
